FAERS Safety Report 23514027 (Version 1)
Quarter: 2024Q1

REPORT INFORMATION
  Report Type: Report from Study
  Country: US (occurrence: US)
  Receive Date: 20240212
  Receipt Date: 20240212
  Transmission Date: 20240410
  Serious: Yes (Life-Threatening, Hospitalization, Other)
  Sender: FDA-Public Use
  Company Number: US-AMGEN-USASL2024019854

PATIENT
  Age: 76 Year
  Sex: Male

DRUGS (1)
  1. ENBREL [Suspect]
     Active Substance: ETANERCEPT
     Indication: Ankylosing spondylitis
     Dosage: 50 MILLIGRAM
     Route: 065

REACTIONS (5)
  - Arthritis bacterial [Unknown]
  - Scratch [Unknown]
  - Wound [Unknown]
  - Sleep disorder due to general medical condition, insomnia type [Unknown]
  - Back pain [Unknown]

NARRATIVE: CASE EVENT DATE: 20240101
